FAERS Safety Report 6553197-1 (Version None)
Quarter: 2010Q1

REPORT INFORMATION
  Report Type: 
  Country: None (occurrence: None)
  Receive Date: 20100127
  Receipt Date: 20090527
  Transmission Date: 20100710
  Serious: No
  Sender: FDA-Public Use
  Company Number: A0774338A

PATIENT
  Sex: Male

DRUGS (4)
  1. IMITREX [Suspect]
     Indication: MIGRAINE
     Dosage: 6MG AS REQUIRED
     Route: 042
  2. IMITREX TABLETS [Concomitant]
  3. AMOXICILLIN [Concomitant]
  4. RONDEC-DM [Concomitant]

REACTIONS (4)
  - DRUG INEFFECTIVE [None]
  - INJECTION SITE PAIN [None]
  - PRODUCT QUALITY ISSUE [None]
  - TEMPERATURE INTOLERANCE [None]
